FAERS Safety Report 7996473-8 (Version None)
Quarter: 2011Q4

REPORT INFORMATION
  Report Type: 
  Country: None (occurrence: None)
  Receive Date: 20111220
  Receipt Date: 20111212
  Transmission Date: 20120403
  Serious: Yes (Hospitalization)
  Sender: FDA-Public Use
  Company Number: US-ASTRAZENECA-2011SE75039

PATIENT
  Age: 48 Year
  Sex: Male
  Weight: 90.7 kg

DRUGS (6)
  1. SEROQUEL [Suspect]
     Indication: DEPRESSION
     Dosage: 100 MG ONCE IN THE MORNING AND 200 MG ONCE AT NIGHT
     Route: 048
     Dates: start: 20030911
  2. METOPROLOL TARTRATE [Concomitant]
  3. IBUPROFEN (ADVIL) [Concomitant]
     Indication: BACK PAIN
  4. SEROQUEL [Suspect]
     Indication: POST-TRAUMATIC STRESS DISORDER
     Dosage: 100 MG ONCE IN THE MORNING AND 200 MG ONCE AT NIGHT
     Route: 048
     Dates: start: 20030911
  5. PROZAC [Concomitant]
     Indication: DEPRESSION
  6. ATIVAN [Concomitant]

REACTIONS (3)
  - ANGINA PECTORIS [None]
  - CHEST PAIN [None]
  - SLEEP DISORDER [None]
